FAERS Safety Report 9490930 (Version 1)
Quarter: 2013Q3

REPORT INFORMATION
  Report Type: Spontaneous
  Country: US (occurrence: None)
  Receive Date: 20130826
  Receipt Date: 20130826
  Transmission Date: 20140515
  Serious: Yes (Hospitalization)
  Sender: FDA-Public Use
  Company Number: ADR-2013225131

PATIENT
  Age: 77 Year
  Sex: Female
  Weight: 63.5 kg

DRUGS (3)
  1. GEMFIBROZIL [Suspect]
     Indication: BLOOD CHOLESTEROL INCREASED
     Route: 048
     Dates: start: 201207, end: 201306
  2. METFORMIN [Concomitant]
  3. SIMVASTATIN [Concomitant]

REACTIONS (5)
  - Fall [None]
  - Gait disturbance [None]
  - Dysstasia [None]
  - Rib fracture [None]
  - Asthenia [None]
